FAERS Safety Report 6402270-7 (Version None)
Quarter: 2009Q4

REPORT INFORMATION
  Report Type: 
  Country: None (occurrence: None)
  Receive Date: 20091015
  Receipt Date: 20091002
  Transmission Date: 20100525
  Serious: No
  Sender: FDA-Public Use
  Company Number: PHEH2009US13040

PATIENT
  Sex: Male

DRUGS (4)
  1. TASIGNA [Suspect]
     Indication: CHRONIC MYELOID LEUKAEMIA
     Dosage: 400 MG, BID
     Route: 048
     Dates: start: 20090918
  2. ZOCOR [Interacting]
  3. NUTRITION SUPPLEMENTS [Concomitant]
  4. UNSPECIFIED HERBAL [Concomitant]

REACTIONS (2)
  - DRUG INTERACTION [None]
  - MYALGIA [None]
